FAERS Safety Report 8126081-X (Version None)
Quarter: 2012Q1

REPORT INFORMATION
  Report Type: 
  Country: None (occurrence: None)
  Receive Date: 20120209
  Receipt Date: 20120202
  Transmission Date: 20120608
  Serious: Yes (Hospitalization, Other)
  Sender: FDA-Public Use
  Company Number: PHHY2011US64413

PATIENT
  Sex: Female

DRUGS (16)
  1. PREVACID [Concomitant]
     Dosage: 30 MG, UNK
     Route: 048
  2. NULEV [Concomitant]
     Dosage: 0.125 MG, UNK
  3. COMPAZINE [Concomitant]
     Dosage: 10 MG, UNK
     Route: 048
  4. ZANTAC [Concomitant]
     Dosage: 300 MG, UNK
     Route: 048
  5. GLUCOPHAGE [Concomitant]
     Dosage: 500 MG, UNK
     Route: 048
  6. FOLVITE [Concomitant]
     Dosage: 1 MG, UNK
     Route: 048
  7. GILENYA [Suspect]
     Indication: MULTIPLE SCLEROSIS
     Dosage: 0.5 MG, QD
     Route: 048
     Dates: start: 20110201
  8. GILENYA [Suspect]
     Dosage: 0.5 MG, QD
     Route: 048
     Dates: start: 20110701
  9. TYLENOL W/ CODEINE NO. 3 [Concomitant]
     Dosage: 1 DF, UNK
     Route: 048
  10. AMBIEN [Concomitant]
     Dosage: 10 MG, UNK
     Route: 048
  11. SYNTHROID [Concomitant]
     Dosage: 75 UG, UNK
     Route: 048
  12. DELTASONE [Concomitant]
     Dosage: 5 MG, UNK
     Route: 048
  13. DELTASONE [Concomitant]
     Dosage: 2.5 MG, UNK
     Route: 048
  14. PRISTIQ [Concomitant]
     Dosage: 50 MG, UNK
     Route: 048
  15. ZANAFLEX [Concomitant]
     Dosage: 4 MG, UNK
     Route: 048
  16. IBUPROFEN (ADVIL) [Concomitant]
     Dosage: 800 MG, UNK
     Route: 048

REACTIONS (4)
  - PAIN IN EXTREMITY [None]
  - WHITE BLOOD CELL COUNT DECREASED [None]
  - ADRENAL DISORDER [None]
  - HYPOAESTHESIA [None]
